FAERS Safety Report 5528652-3 (Version None)
Quarter: 2007Q4

REPORT INFORMATION
  Report Type: 
  Country: None (occurrence: None)
  Receive Date: 20071129
  Receipt Date: 20071122
  Transmission Date: 20080405
  Serious: Yes (Hospitalization)
  Sender: FDA-Public Use
  Company Number: PHHO2007HK15685

PATIENT
  Age: 38 Year
  Sex: Female

DRUGS (3)
  1. ERL 080A ERL+TAB [Suspect]
     Indication: RENAL TRANSPLANT
     Dosage: 720 MG, BID
     Route: 048
     Dates: start: 20070818, end: 20070927
  2. NEORAL [Concomitant]
     Indication: RENAL TRANSPLANT
     Dosage: 125 MG, BID
     Route: 048
     Dates: start: 20070817
  3. PREDNISOLONE [Concomitant]
     Indication: RENAL TRANSPLANT
     Dosage: 27.5 MG/DAILY
     Route: 048
     Dates: start: 20070820

REACTIONS (18)
  - ABDOMINAL PAIN [None]
  - ANAEMIA [None]
  - CANDIDIASIS [None]
  - CATHETER REMOVAL [None]
  - CATHETER SITE INFECTION [None]
  - CYTOMEGALOVIRUS INFECTION [None]
  - DUODENITIS [None]
  - ESCHERICHIA INFECTION [None]
  - FUNGAL PERITONITIS [None]
  - INCISIONAL DRAINAGE [None]
  - PERINEPHRIC COLLECTION [None]
  - PERITONEAL EFFUSION [None]
  - PYREXIA [None]
  - RENAL LYMPHOCELE [None]
  - SECRETION DISCHARGE [None]
  - SKIN OEDEMA [None]
  - THROMBOCYTOPENIA [None]
  - URINARY TRACT INFECTION [None]
